FAERS Safety Report 9239975 (Version 3)
Quarter: 2013Q3

REPORT INFORMATION
  Report Type: Report from Study
  Country: CN (occurrence: CN)
  Receive Date: 20130418
  Receipt Date: 20130911
  Transmission Date: 20140515
  Serious: Yes (Hospitalization, Other)
  Sender: FDA-Public Use
  Company Number: CN-ABBOTT-13P-035-1074520-00

PATIENT
  Age: 55 Year
  Sex: Female
  Weight: 54 kg

DRUGS (3)
  1. HUMIRA [Suspect]
     Indication: PSORIASIS
     Route: 058
     Dates: start: 20121114, end: 20130327
  2. FUBIRUN [Concomitant]
     Indication: DRY SKIN
     Dates: start: 20121120, end: 20121218
  3. FUBIRUN [Concomitant]
     Dates: start: 20121231

REACTIONS (1)
  - Endometrial cancer [Not Recovered/Not Resolved]
